FAERS Safety Report 6761947-4 (Version None)
Quarter: 2010Q2

REPORT INFORMATION
  Report Type: 
  Country: None (occurrence: None)
  Receive Date: 20100609
  Receipt Date: 20100603
  Transmission Date: 20101027
  Serious: Yes (Other)
  Sender: FDA-Public Use
  Company Number: US-JNJFOC-20100601447

PATIENT
  Sex: Female
  Weight: 47.63 kg

DRUGS (7)
  1. DURAGESIC-100 [Suspect]
     Indication: FIBROMYALGIA
     Route: 062
  2. DURAGESIC-100 [Suspect]
     Route: 062
  3. FENTANYL-100 [Suspect]
     Indication: DRUG USE FOR UNKNOWN INDICATION
     Route: 062
  4. FENTANYL-100 [Suspect]
     Route: 062
  5. OXYCODONE [Concomitant]
     Indication: BREAKTHROUGH PAIN
     Route: 048
  6. XANAX [Concomitant]
     Indication: SLEEP DISORDER
     Route: 048
  7. ESTRADIOL [Concomitant]
     Indication: HORMONE REPLACEMENT THERAPY
     Route: 048

REACTIONS (6)
  - BREAKTHROUGH PAIN [None]
  - COUGH [None]
  - DRUG EFFECT DECREASED [None]
  - DYSPEPSIA [None]
  - PAIN [None]
  - THYROID DISORDER [None]
